FAERS Safety Report 8373184-0 (Version None)
Quarter: 2012Q2

REPORT INFORMATION
  Report Type: 
  Country: None (occurrence: None)
  Receive Date: 20120521
  Receipt Date: 20120514
  Transmission Date: 20120825
  Serious: Yes (Hospitalization)
  Sender: FDA-Public Use
  Company Number: GB-PFIZER INC-2012087123

PATIENT
  Age: 75 Year
  Sex: Male

DRUGS (1)
  1. CELECOXIB [Suspect]
     Indication: OSTEOARTHRITIS
     Dosage: 100 MG, 2X/DAY
     Route: 048
     Dates: start: 20090817, end: 20110816

REACTIONS (4)
  - HYPONATRAEMIA [None]
  - RESPIRATORY TRACT INFECTION [None]
  - ATRIAL FIBRILLATION [None]
  - RESPIRATORY DISORDER [None]
